FAERS Safety Report 24540646 (Version 1)
Quarter: 2024Q4

REPORT INFORMATION
  Report Type: Other
  Country: US (occurrence: US)
  Receive Date: 20241023
  Receipt Date: 20241023
  Transmission Date: 20250114
  Serious: Yes (Life-Threatening)
  Sender: B BRAUN
  Company Number: US-B.Braun Medical Inc.-2163655

PATIENT
  Age: 30 Year
  Sex: Male

DRUGS (6)
  1. HEPARIN SODIUM IN DEXTROSE [Suspect]
     Active Substance: HEPARIN SODIUM
     Indication: Cardiac ventricular thrombosis
  2. HEPARIN SODIUM IN DEXTROSE [Suspect]
     Active Substance: HEPARIN SODIUM
     Indication: Renal infarct
  3. HEPARIN SODIUM IN DEXTROSE [Suspect]
     Active Substance: HEPARIN SODIUM
     Indication: Pulmonary embolism
  4. BUMETANIDE [Concomitant]
     Active Substance: BUMETANIDE
  5. AMIODARONE [Concomitant]
     Active Substance: AMIODARONE
  6. MILRINONE [Concomitant]
     Active Substance: MILRINONE

REACTIONS (1)
  - Drug ineffective [Unknown]
